FAERS Safety Report 8831587 (Version 11)
Quarter: 2015Q4

REPORT INFORMATION
  Report Type: Spontaneous
  Country: US (occurrence: US)
  Receive Date: 20121009
  Receipt Date: 20151123
  Transmission Date: 20160305
  Serious: Yes (Hospitalization, Other)
  Sender: FDA-Public Use
  Company Number: US-GLAXOSMITHKLINE-A0988657A

PATIENT
  Age: 53 Year
  Sex: Female

DRUGS (10)
  1. FLOLAN [Suspect]
     Active Substance: EPOPROSTENOL SODIUM
     Dosage: UNK
     Dates: start: 20080609
  2. FLOLAN [Suspect]
     Active Substance: EPOPROSTENOL SODIUM
     Dosage: UNK
  3. WARFARIN [Concomitant]
     Active Substance: WARFARIN
  4. FLOLAN [Suspect]
     Active Substance: EPOPROSTENOL SODIUM
     Dosage: 20.5 NG/KG/MIN, UNK
     Route: 042
  5. ADCIRCA [Concomitant]
     Active Substance: TADALAFIL
  6. FLOLAN [Suspect]
     Active Substance: EPOPROSTENOL SODIUM
     Dosage: UNK
     Dates: start: 20120202
  7. FLOLAN [Suspect]
     Active Substance: EPOPROSTENOL SODIUM
     Dosage: UNK
     Dates: start: 20080609
  8. LETAIRIS [Concomitant]
     Active Substance: AMBRISENTAN
  9. FLOLAN [Suspect]
     Active Substance: EPOPROSTENOL SODIUM
     Dosage: UNK
     Dates: start: 20080609
  10. FLOLAN [Suspect]
     Active Substance: EPOPROSTENOL SODIUM
     Indication: PULMONARY ARTERIAL HYPERTENSION
     Dosage: 18 NG/KG/MIN, CO
     Route: 042
     Dates: start: 20080609

REACTIONS (15)
  - Pneumonitis [Unknown]
  - Pain in extremity [Not Recovered/Not Resolved]
  - Dyspnoea exertional [Unknown]
  - Application site hypersensitivity [Unknown]
  - Procedural complication [Unknown]
  - Pain [Unknown]
  - Adverse drug reaction [Not Recovered/Not Resolved]
  - Diarrhoea [Not Recovered/Not Resolved]
  - Multiple allergies [Unknown]
  - Headache [Unknown]
  - Rash [Unknown]
  - Pain in jaw [Not Recovered/Not Resolved]
  - Adverse event [Unknown]
  - Dysentery [Unknown]
  - Hot flush [Unknown]

NARRATIVE: CASE EVENT DATE: 20140901
